FAERS Safety Report 5899517-2 (Version None)
Quarter: 2008Q3

REPORT INFORMATION
  Report Type: 
  Country: None (occurrence: None)
  Receive Date: 20080926
  Receipt Date: 20080917
  Transmission Date: 20090109
  Serious: Yes (Hospitalization)
  Sender: FDA-Public Use
  Company Number: CH-JNJFOC-20080904547

PATIENT
  Sex: Female

DRUGS (2)
  1. REMICADE [Suspect]
     Indication: MUSCULOSKELETAL PAIN
     Route: 042
  2. METHOTREXATE [Concomitant]

REACTIONS (1)
  - PNEUMOCYSTIS JIROVECI INFECTION [None]
